FAERS Safety Report 15564139 (Version 2)
Quarter: 2018Q4

REPORT INFORMATION
  Report Type: Spontaneous
  Country: US (occurrence: US)
  Receive Date: 20181030
  Receipt Date: 20181105
  Transmission Date: 20190205
  Serious: Yes (Hospitalization)
  Sender: FDA-Public Use
  Company Number: US-ASTRAZENECA-2018SF36795

PATIENT
  Age: 870 Month
  Sex: Male
  Weight: 125.2 kg

DRUGS (3)
  1. COUMADIN [Concomitant]
     Active Substance: WARFARIN SODIUM
  2. BYDUREON [Suspect]
     Active Substance: EXENATIDE
     Route: 058
  3. BYDUREON BCISE [Suspect]
     Active Substance: EXENATIDE
     Indication: TYPE 2 DIABETES MELLITUS
     Route: 058

REACTIONS (11)
  - Fall [Unknown]
  - Loss of consciousness [Unknown]
  - Incorrect dose administered [Unknown]
  - Blood glucose increased [Unknown]
  - Injection site extravasation [Unknown]
  - Device leakage [Unknown]
  - Dizziness [Unknown]
  - Blood pressure abnormal [Unknown]
  - Weight increased [Unknown]
  - Injection site haemorrhage [Unknown]
  - Urinary tract disorder [Unknown]

NARRATIVE: CASE EVENT DATE: 201804
